FAERS Safety Report 5821618-5 (Version None)
Quarter: 2008Q3

REPORT INFORMATION
  Report Type: 
  Country: None (occurrence: None)
  Receive Date: 20080714
  Receipt Date: 20071128
  Transmission Date: 20090109
  Serious: Yes (Hospitalization)
  Sender: FDA-Public Use
  Company Number: 497283

PATIENT
  Age: 70 Year
  Sex: Female

DRUGS (8)
  1. BONIVA [Suspect]
     Indication: OSTEOPOROSIS
     Dosage: 150 MG 1 PER MONTH
     Dates: start: 20060414
  2. VITAMIN D NOS (VITAMIN D NOS) [Concomitant]
  3. OSCAL (CALCIUM CARBONATE) [Concomitant]
  4. VITAMIN E (ALPHA-TOCOPHEROL) [Concomitant]
  5. FOLIC ACID [Concomitant]
  6. FISH OIL (FATTY ACIDS NOS) [Concomitant]
  7. ASCORBIC ACID [Concomitant]
  8. 1 CONCOMITANT DRUG (GENERIC UNKNOWN) [Concomitant]

REACTIONS (11)
  - ABDOMINAL PAIN [None]
  - DIARRHOEA [None]
  - GASTRIC DISORDER [None]
  - GASTROINTESTINAL DISORDER [None]
  - GASTROOESOPHAGEAL REFLUX DISEASE [None]
  - HYPOPHAGIA [None]
  - ILL-DEFINED DISORDER [None]
  - MALAISE [None]
  - NAUSEA [None]
  - STOMACH DISCOMFORT [None]
  - WEIGHT DECREASED [None]
